FAERS Safety Report 8334499-5 (Version None)
Quarter: 2012Q2

REPORT INFORMATION
  Report Type: 
  Country: None (occurrence: None)
  Receive Date: 20120503
  Receipt Date: 20120418
  Transmission Date: 20120825
  Serious: Yes (Hospitalization, Disabling)
  Sender: FDA-Public Use
  Company Number: CN-JNJFOC-20110510627

PATIENT
  Sex: Male

DRUGS (5)
  1. IMODIUM [Suspect]
     Indication: ABDOMINAL PAIN
     Route: 048
     Dates: start: 20110522, end: 20110522
  2. UNKNOWN MEDICATION [Suspect]
     Indication: DIARRHOEA
     Route: 048
     Dates: end: 20110522
  3. AZITHROMYCIN [Concomitant]
     Indication: INFLUENZA
     Route: 065
     Dates: start: 20110521
  4. UNKNOWN MEDICATION [Suspect]
     Indication: VOMITING
     Route: 048
     Dates: end: 20110522
  5. ALL OTHER THERAPEUTIC PRODUCTS [Suspect]
     Indication: DYSPEPSIA
     Route: 065

REACTIONS (8)
  - VOMITING [None]
  - DIARRHOEA [None]
  - ABDOMINAL PAIN UPPER [None]
  - SOMNOLENCE [None]
  - MYOSITIS [None]
  - INTENTIONAL DRUG MISUSE [None]
  - HYPOTONIA [None]
  - ACUTE TONSILLITIS [None]
